FAERS Safety Report 9748655 (Version 1)
Quarter: 2013Q4

REPORT INFORMATION
  Report Type: Spontaneous
  Country: None (occurrence: None)
  Receive Date: 20131209
  Receipt Date: 20131209
  Transmission Date: 20140711
  Serious: Yes (Hospitalization, Other)
  Sender: FDA-Public Use
  Company Number: DAV-AE-PYR-13-07

PATIENT
  Age: 57 Year
  Sex: Male

DRUGS (6)
  1. PYRAZINAMIDE [Suspect]
  2. AZITHROMYCIN [Concomitant]
  3. ETHAMBUTOL [Concomitant]
  4. ISONIAZID [Concomitant]
  5. LEVOFLOXACIN [Concomitant]
  6. RIFAMPICIN [Concomitant]

REACTIONS (1)
  - Acute hepatic failure [None]
